FAERS Safety Report 4930460-9 (Version None)
Quarter: 2006Q1

REPORT INFORMATION
  Report Type: 
  Country: None (occurrence: None)
  Receive Date: 20060118
  Receipt Date: 20050608
  Transmission Date: 20060701
  Serious: No
  Sender: FDA-Public Use
  Company Number: 2005001085

PATIENT
  Age: 71 Year
  Sex: Female

DRUGS (2)
  1. TARCEVA [Suspect]
     Indication: NON-SMALL CELL LUNG CANCER
     Dosage: 150 MG (QD), ORAL; 100 MG (QD), ORAL
     Route: 048
     Dates: start: 20050301, end: 20050401
  2. TARCEVA [Suspect]
     Indication: NON-SMALL CELL LUNG CANCER
     Dosage: 150 MG (QD), ORAL; 100 MG (QD), ORAL
     Route: 048
     Dates: start: 20050401

REACTIONS (5)
  - ALOPECIA [None]
  - DIARRHOEA [None]
  - MUSCLE SPASMS [None]
  - NAUSEA [None]
  - RASH [None]
